FAERS Safety Report 5851200-5 (Version None)
Quarter: 2008Q3

REPORT INFORMATION
  Report Type: 
  Country: None (occurrence: None)
  Receive Date: 20080820
  Receipt Date: 20080813
  Transmission Date: 20090109
  Serious: Yes (Life-Threatening)
  Sender: FDA-Public Use
  Company Number: PHHO2008GB09509

PATIENT
  Sex: Female

DRUGS (4)
  1. TASIGNA [Suspect]
     Indication: BLAST CRISIS IN MYELOGENOUS LEUKAEMIA
     Dosage: HIGHER DOSE
     Route: 048
     Dates: start: 20080524, end: 20080526
  2. TASIGNA [Suspect]
     Dosage: UNK
     Dates: start: 20080527, end: 20080529
  3. TASIGNA [Suspect]
     Dosage: HIGHER DOSE
     Route: 048
     Dates: start: 20080530
  4. GLEEVEC [Suspect]
     Indication: BLAST CRISIS IN MYELOGENOUS LEUKAEMIA
     Dosage: UNK
     Route: 048
     Dates: start: 20080404, end: 20080519

REACTIONS (5)
  - ASPIRATION PLEURAL CAVITY [None]
  - DIALYSIS [None]
  - FLUID RETENTION [None]
  - PERICARDIAL EFFUSION [None]
  - PLEURAL EFFUSION [None]
